FAERS Safety Report 7306555-1 (Version None)
Quarter: 2011Q1

REPORT INFORMATION
  Report Type: 
  Country: None (occurrence: None)
  Receive Date: 20110222
  Receipt Date: 20110207
  Transmission Date: 20110831
  Serious: Yes (Death)
  Sender: FDA-Public Use
  Company Number: FR-GENENTECH-312995

PATIENT
  Sex: Male

DRUGS (2)
  1. LUCENTIS [Suspect]
     Indication: MACULAR DEGENERATION
     Dosage: 0.05 ML, UNKNOWN
     Route: 031
     Dates: start: 20090625, end: 20091202
  2. LUCENTIS [Suspect]
     Dosage: 0.05 ML, UNKNOWN
     Route: 031
     Dates: start: 20091202

REACTIONS (1)
  - HEPATIC NEOPLASM MALIGNANT [None]
